FAERS Safety Report 7594488-5 (Version None)
Quarter: 2011Q3

REPORT INFORMATION
  Report Type: 
  Country: None (occurrence: None)
  Receive Date: 20110707
  Receipt Date: 20110630
  Transmission Date: 20111222
  Serious: Yes (Other)
  Sender: FDA-Public Use
  Company Number: NL-AMGEN-NLDSP2011033953

PATIENT
  Age: 57 Year
  Sex: Female

DRUGS (3)
  1. FOLIC ACID [Concomitant]
     Dosage: UNK
  2. MTX                                /00113801/ [Concomitant]
     Dosage: UNK
  3. ENBREL [Suspect]
     Indication: RHEUMATOID ARTHRITIS
     Dosage: 25 MG, 2X/WEEK
     Dates: end: 20100601

REACTIONS (1)
  - BREAST CANCER [None]
